FAERS Safety Report 4836051-2 (Version None)
Quarter: 2005Q4

REPORT INFORMATION
  Report Type: 
  Country: None (occurrence: None)
  Receive Date: 20051123
  Receipt Date: 20050708
  Transmission Date: 20060501
  Serious: Yes (Hospitalization, Other)
  Sender: FDA-Public Use
  Company Number: US-MERCK-0507USA01269

PATIENT
  Age: 42 Year
  Sex: Female
  Weight: 91 kg

DRUGS (17)
  1. VIOXX [Suspect]
     Indication: ARTHRITIS
     Route: 048
     Dates: start: 20020101, end: 20040101
  2. WARFARIN [Concomitant]
     Indication: THROMBOSIS
     Route: 065
     Dates: start: 19940201
  3. ISOSORBIDE [Concomitant]
     Indication: DEEP VEIN THROMBOSIS
     Route: 065
     Dates: start: 20000101
  4. IBUPROFEN [Concomitant]
     Indication: BACK PAIN
     Route: 065
  5. IBUPROFEN [Concomitant]
     Indication: ARTHRITIS
     Route: 065
  6. ZOLOFT [Concomitant]
     Indication: DEPRESSION
     Route: 065
  7. NITROGLYCERIN [Concomitant]
     Route: 065
  8. BETASERON [Concomitant]
     Indication: MULTIPLE SCLEROSIS
     Route: 065
  9. PREMARIN [Concomitant]
     Indication: HORMONE REPLACEMENT THERAPY
     Route: 065
     Dates: start: 19980601, end: 20030212
  10. ZOCOR [Concomitant]
     Indication: MULTIPLE SCLEROSIS
     Route: 065
     Dates: start: 20000116, end: 20030301
  11. LASIX [Concomitant]
     Indication: SWELLING
     Route: 065
     Dates: start: 20010101
  12. COUMADIN [Concomitant]
     Route: 065
     Dates: start: 19940201
  13. HEPARIN [Concomitant]
     Route: 065
     Dates: start: 19940201
  14. PLAVIX [Concomitant]
     Indication: CHEST PAIN
     Route: 065
     Dates: start: 20000301
  15. DIPYRIDAMOLE [Concomitant]
     Indication: CHEST PAIN
     Route: 065
     Dates: start: 20000301
  16. THIOTEPA [Concomitant]
     Indication: CHEST PAIN
     Route: 065
     Dates: start: 20000301
  17. DEPAKOTE [Concomitant]
     Route: 065
     Dates: start: 20020601, end: 20021201

REACTIONS (7)
  - ANGINA PECTORIS [None]
  - BLOOD CHOLESTEROL INCREASED [None]
  - CARDIAC DISORDER [None]
  - CEREBROVASCULAR ACCIDENT [None]
  - EMOTIONAL DISTRESS [None]
  - OVERDOSE [None]
  - TRANSIENT ISCHAEMIC ATTACK [None]
